FAERS Safety Report 6384839-1 (Version None)
Quarter: 2009Q4

REPORT INFORMATION
  Report Type: 
  Country: None (occurrence: None)
  Receive Date: 20091002
  Receipt Date: 20090924
  Transmission Date: 20100525
  Serious: Yes (Hospitalization)
  Sender: FDA-Public Use
  Company Number: US-BIOGENIDEC-2009BI024398

PATIENT
  Age: 52 Year
  Sex: Male

DRUGS (1)
  1. TYSABRI [Suspect]
     Indication: MULTIPLE SCLEROSIS
     Route: 042
     Dates: start: 20080908, end: 20090724

REACTIONS (7)
  - ARTHRALGIA [None]
  - CONTUSION [None]
  - DRUG INEFFECTIVE [None]
  - FALL [None]
  - FEMUR FRACTURE [None]
  - HIP FRACTURE [None]
  - PAIN IN EXTREMITY [None]
